FAERS Safety Report 19084993 (Version 1)
Quarter: 2021Q2

REPORT INFORMATION
  Report Type: Report from Study
  Country: US (occurrence: US)
  Receive Date: 20210401
  Receipt Date: 20210401
  Transmission Date: 20210717
  Serious: No
  Sender: FDA-Public Use
  Company Number: US-RETROPHIN, INC.-2020RTN00123

PATIENT
  Age: 4 Year
  Sex: Male
  Weight: 19.5 kg

DRUGS (2)
  1. CHOLIC ACID [Suspect]
     Active Substance: CHOLIC ACID
     Indication: INBORN ERROR IN PRIMARY BILE ACID SYNTHESIS
     Dosage: 250 MG, 1X/DAY
     Route: 048
     Dates: start: 20161028, end: 20200901
  2. CHOLIC ACID [Suspect]
     Active Substance: CHOLIC ACID
     Dosage: 250 MG, 1X/DAY
     Route: 048
     Dates: start: 202009

REACTIONS (3)
  - Chromaturia [Unknown]
  - Product dose omission issue [Recovered/Resolved]
  - Jaundice [Unknown]

NARRATIVE: CASE EVENT DATE: 20200902
